FAERS Safety Report 4338140-8 (Version None)
Quarter: 2004Q2

REPORT INFORMATION
  Report Type: 
  Country: None (occurrence: None)
  Receive Date: 20040407
  Receipt Date: 20040326
  Transmission Date: 20050107
  Serious: Yes (Hospitalization, Disabling, Other)
  Sender: FDA-Public Use
  Company Number: 2004196164JP

PATIENT
  Age: 5 Year
  Sex: Female
  Weight: 10.2 kg

DRUGS (2)
  1. GENOTROPIN [Suspect]
     Indication: PRADER-WILLI SYNDROME
     Dosage: 0.4-0.5 MG, QD, SUBCUTANEOUS; 0.5 MG, QD, SUBCUTANEOUS
     Route: 058
     Dates: start: 20021008, end: 20040126
  2. GENOTROPIN [Suspect]
     Indication: PRADER-WILLI SYNDROME
     Dosage: 0.4-0.5 MG, QD, SUBCUTANEOUS; 0.5 MG, QD, SUBCUTANEOUS
     Route: 058
     Dates: start: 20040127

REACTIONS (1)
  - KAWASAKI'S DISEASE [None]
